FAERS Safety Report 25777329 (Version 1)
Quarter: 2025Q3

REPORT INFORMATION
  Report Type: Spontaneous
  Country: US (occurrence: US)
  Receive Date: 20250909
  Receipt Date: 20250909
  Transmission Date: 20251020
  Serious: No
  Sender: ALEXION PHARMACEUTICALS
  Company Number: US-AstraZeneca-CH-00944856A

PATIENT
  Age: 21 Year
  Sex: Male
  Weight: 92.99 kg

DRUGS (2)
  1. FASENRA [Suspect]
     Active Substance: BENRALIZUMAB
     Indication: Asthma
     Dosage: 30 MILLIGRAM PER MILLILITRE, Q4W
     Dates: start: 20250904
  2. FASENRA [Suspect]
     Active Substance: BENRALIZUMAB

REACTIONS (3)
  - Asthenia [Recovering/Resolving]
  - Dizziness [Recovering/Resolving]
  - Tongue discomfort [Recovering/Resolving]

NARRATIVE: CASE EVENT DATE: 20250904
